FAERS Safety Report 25524829 (Version 1)
Quarter: 2025Q3

REPORT INFORMATION
  Report Type: Spontaneous
  Country: GB (occurrence: GB)
  Receive Date: 20250707
  Receipt Date: 20250707
  Transmission Date: 20251021
  Serious: Yes (Other)
  Sender: MYLAN
  Company Number: None

PATIENT
  Age: 52 Year
  Sex: Female
  Weight: 83 kg

DRUGS (12)
  1. APIXABAN [Suspect]
     Active Substance: APIXABAN
     Indication: Thrombosis prophylaxis
     Dosage: 5 MILLIGRAM, BID (5MG TWICE DAILY)
     Dates: start: 20250502, end: 20250516
  2. ATORVASTATIN [Concomitant]
     Active Substance: ATORVASTATIN
     Indication: Disease risk factor
  3. BISOPROLOL [Concomitant]
     Active Substance: BISOPROLOL
     Indication: Cardiomyopathy
  4. COCODAMOL [Concomitant]
     Active Substance: ACETAMINOPHEN\CODEINE PHOSPHATE
     Indication: Back pain
  5. EMPAGLIFLOZIN [Concomitant]
     Active Substance: EMPAGLIFLOZIN
     Indication: Cardiac dysfunction
  6. FUROSEMIDE [Concomitant]
     Active Substance: FUROSEMIDE
     Indication: Adverse drug reaction
  7. ESOMEPRAZOLE [Concomitant]
     Active Substance: ESOMEPRAZOLE
     Indication: Gastrooesophageal reflux disease
  8. FENOFIBRATE [Concomitant]
     Active Substance: FENOFIBRATE
  9. METFORMIN [Concomitant]
     Active Substance: METFORMIN HYDROCHLORIDE
  10. DISOPYRAMIDE [Concomitant]
     Active Substance: DISOPYRAMIDE
     Indication: Cardiomyopathy
  11. SOLIFENACIN [Concomitant]
     Active Substance: SOLIFENACIN
  12. AMITRIPTYLINE [Concomitant]
     Active Substance: AMITRIPTYLINE

REACTIONS (2)
  - Vaginal haemorrhage [Recovered/Resolved]
  - Dizziness [Recovered/Resolved]

NARRATIVE: CASE EVENT DATE: 20250502
